FAERS Safety Report 6939991-3 (Version None)
Quarter: 2010Q3

REPORT INFORMATION
  Report Type: 
  Country: None (occurrence: None)
  Receive Date: 20100825
  Receipt Date: 20100813
  Transmission Date: 20110219
  Serious: Yes (Death)
  Sender: FDA-Public Use
  Company Number: US-PFIZER INC-2010060477

PATIENT
  Sex: Male
  Weight: 88 kg

DRUGS (1)
  1. VFEND [Suspect]
     Indication: PNEUMONIA
     Dosage: 200 MG, 2X/DAY
     Route: 048
     Dates: start: 20090710, end: 20100222

REACTIONS (1)
  - COMPLETED SUICIDE [None]
